FAERS Safety Report 11399220 (Version 2)
Quarter: 2015Q3

REPORT INFORMATION
  Report Type: Other
  Country: US (occurrence: US)
  Receive Date: 20150820
  Receipt Date: 20150826
  Transmission Date: 20151125
  Serious: Yes (Other)
  Sender: FDA-Public Use
  Company Number: US-LUPIN PHARMACEUTICALS INC.-2015-01630

PATIENT
  Age: 55 Year
  Sex: Female

DRUGS (3)
  1. PIPERACILLIN+ TAZOBACTAM [Concomitant]
     Indication: NOSOCOMIAL INFECTION
     Route: 065
  2. HEPARIN [Suspect]
     Active Substance: HEPARIN SODIUM
     Indication: ANTICOAGULANT THERAPY
     Route: 065
  3. VANCOMYCIN [Suspect]
     Active Substance: VANCOMYCIN
     Indication: NOSOCOMIAL INFECTION
     Route: 065

REACTIONS (1)
  - Thrombocytopenia [Recovered/Resolved]
